FAERS Safety Report 10072465 (Version 1)
Quarter: 2014Q2

REPORT INFORMATION
  Report Type: Spontaneous
  Country: US (occurrence: None)
  Receive Date: 20140410
  Receipt Date: 20140410
  Transmission Date: 20141212
  Serious: Yes (Hospitalization)
  Sender: FDA-Public Use
  Company Number: None

PATIENT
  Age: 81 Year
  Sex: Male
  Weight: 62.3 kg

DRUGS (2)
  1. XARELTO [Suspect]
     Indication: ATRIAL FIBRILLATION
     Dosage: SEE B5 FOR DESCRIPTION OF EVENT 10 MG DAILY PO
     Route: 048
  2. XARELTO [Suspect]
     Indication: ANTICOAGULANT THERAPY
     Dosage: SEE B5 FOR DESCRIPTION OF EVENT 10 MG DAILY PO
     Route: 048

REACTIONS (1)
  - Epistaxis [None]
